FAERS Safety Report 11004958 (Version 3)
Quarter: 2015Q3

REPORT INFORMATION
  Report Type: Spontaneous
  Country: US (occurrence: US)
  Receive Date: 20150409
  Receipt Date: 20150715
  Transmission Date: 20151125
  Serious: Yes (Death, Hospitalization, Other)
  Sender: FDA-Public Use
  Company Number: US-009507513-1504USA003798

PATIENT
  Sex: Female
  Weight: 83.9 kg

DRUGS (1)
  1. JANUVIA [Suspect]
     Active Substance: SITAGLIPTIN PHOSPHATE
     Indication: TYPE 2 DIABETES MELLITUS
     Dosage: 100 MG, QD
     Route: 048
     Dates: start: 20070125, end: 20101202

REACTIONS (35)
  - Dehydration [Unknown]
  - Metastases to liver [Unknown]
  - Renal failure [Unknown]
  - Hypersensitivity [Recovered/Resolved]
  - Bile duct stent insertion [Unknown]
  - Rehabilitation therapy [Unknown]
  - Constipation [Unknown]
  - Cataract [Unknown]
  - Fall [Unknown]
  - Bundle branch block left [Unknown]
  - Insomnia [Unknown]
  - Cerebrovascular accident [Recovered/Resolved with Sequelae]
  - Urinary tract infection [Unknown]
  - Hyponatraemia [Unknown]
  - Dyslipidaemia [Unknown]
  - Deep vein thrombosis [Unknown]
  - Jaundice cholestatic [Recovered/Resolved]
  - Abdominal abscess [Unknown]
  - Diverticulum intestinal [Unknown]
  - Hyperlipidaemia [Unknown]
  - Diverticulum [Unknown]
  - Pancreatic carcinoma metastatic [Fatal]
  - Hemiparesis [Recovering/Resolving]
  - Enterobacter test positive [Unknown]
  - Sinus tachycardia [Unknown]
  - Lung consolidation [Unknown]
  - Pleural effusion [Unknown]
  - Peripheral vascular disorder [Unknown]
  - Hypertension [Unknown]
  - Arteriosclerosis [Unknown]
  - Anxiety [Unknown]
  - Bile duct stenosis [Unknown]
  - Spinal osteoarthritis [Unknown]
  - Diabetic neuropathy [Unknown]
  - Depression [Unknown]

NARRATIVE: CASE EVENT DATE: 20100316
